FAERS Safety Report 18923384 (Version 1)
Quarter: 2021Q1

REPORT INFORMATION
  Report Type: Spontaneous
  Country: DE (occurrence: DE)
  Receive Date: 20210222
  Receipt Date: 20210222
  Transmission Date: 20210420
  Serious: Yes (Hospitalization, Other)
  Sender: FDA-Public Use
  Company Number: DE-ASTRAZENECA-2021A060845

PATIENT
  Sex: Male
  Weight: 108 kg

DRUGS (5)
  1. ASS 100 [Concomitant]
     Active Substance: ASPIRIN
     Indication: DIABETES MELLITUS
  2. SULIQUA [Concomitant]
     Active Substance: INSULIN GLARGINE\LIXISENATIDE
     Dates: start: 20020623
  3. FORXIGA [Suspect]
     Active Substance: DAPAGLIFLOZIN
     Indication: TYPE 2 DIABETES MELLITUS
     Dosage: 1?0?0
     Route: 048
     Dates: start: 20180127, end: 20210109
  4. METFORMIN [Concomitant]
     Active Substance: METFORMIN HYDROCHLORIDE
     Dosage: 2X1000 MG/D (LONG?STANDING ADDITIONAL GABE)
  5. ASS 100 [Concomitant]
     Active Substance: ASPIRIN
     Indication: NEPHROPATHY

REACTIONS (3)
  - Groin pain [Recovering/Resolving]
  - Swelling [Recovering/Resolving]
  - Fournier^s gangrene [Recovering/Resolving]

NARRATIVE: CASE EVENT DATE: 20210109
